FAERS Safety Report 7544548-X (Version None)
Quarter: 2011Q2

REPORT INFORMATION
  Report Type: 
  Country: None (occurrence: None)
  Receive Date: 20110613
  Receipt Date: 20110608
  Transmission Date: 20111010
  Serious: Yes (Other)
  Sender: FDA-Public Use
  Company Number: US-ELI_LILLY_AND_COMPANY-US200910004065

PATIENT
  Sex: Female
  Weight: 100.23 kg

DRUGS (14)
  1. METFORMIN HCL [Concomitant]
     Indication: DIABETES MELLITUS
     Dosage: 1000 MBQ, 2/D
     Dates: start: 19990101
  2. ADVAIR DISKUS 100/50 [Concomitant]
  3. AMARYL [Concomitant]
     Dosage: 4 MG, 2/D
  4. IBUPROFEN [Concomitant]
     Indication: FIBROMYALGIA
     Dates: start: 19990101
  5. ALBUTEROL SULFATE AUTOHALER [Concomitant]
  6. BYETTA [Suspect]
     Dosage: 5 UG, 2/D
     Dates: start: 20050901, end: 20051001
  7. ACTOS [Concomitant]
     Indication: DIABETES MELLITUS
     Dosage: 45 MG, DAILY (1/D)
     Dates: start: 19990101
  8. ZOLOFT [Concomitant]
     Indication: DEPRESSION
     Dates: start: 19990101
  9. TRAZODONE HCL [Concomitant]
  10. TOPROL-XL [Concomitant]
  11. BYETTA [Suspect]
     Dosage: 10 UG, 2/D
     Dates: start: 20051001, end: 20071101
  12. LISINOPRIL [Concomitant]
  13. PROTONIX [Concomitant]
  14. AMBIEN [Concomitant]
     Indication: INSOMNIA
     Dosage: UNK, DAILY (1/D)
     Dates: start: 20050101

REACTIONS (4)
  - OFF LABEL USE [None]
  - RENAL DISORDER [None]
  - PANCREATITIS CHRONIC [None]
  - DEPRESSION [None]
